FAERS Safety Report 5158418-8 (Version None)
Quarter: 2006Q4

REPORT INFORMATION
  Report Type: 
  Country: None (occurrence: None)
  Receive Date: 20061128
  Receipt Date: 20061114
  Transmission Date: 20070319
  Serious: Yes (Hospitalization)
  Sender: FDA-Public Use
  Company Number: US-AMGEN-US200314

PATIENT
  Sex: Female

DRUGS (2)
  1. ENBREL [Suspect]
     Indication: RHEUMATOID ARTHRITIS
     Route: 058
     Dates: start: 20030601
  2. METHOTREXATE [Concomitant]
     Dates: start: 19910101

REACTIONS (6)
  - BLADDER PROLAPSE [None]
  - CHEST PAIN [None]
  - INFLAMMATION [None]
  - MUSCULOSKELETAL CHEST PAIN [None]
  - RECTAL PROLAPSE [None]
  - URINARY TRACT INFECTION [None]
